FAERS Safety Report 23725219 (Version 1)
Quarter: 2024Q2

REPORT INFORMATION
  Report Type: Other
  Country: CA (occurrence: CA)
  Receive Date: 20240410
  Receipt Date: 20240410
  Transmission Date: 20240716
  Serious: Yes (Other)
  Sender: FDA-Public Use
  Company Number: CA-BIOCON BIOLOGICS LIMITED-BBL2024002234

PATIENT

DRUGS (1)
  1. OGIVRI [Suspect]
     Active Substance: TRASTUZUMAB-DKST
     Indication: Lung neoplasm malignant
     Dosage: 283.8 MILLIGRAM, Q2W (1 EVERY 2 WEEKS)
     Route: 042

REACTIONS (2)
  - Femur fracture [Recovering/Resolving]
  - Off label use [Recovering/Resolving]
